FAERS Safety Report 26091952 (Version 3)
Quarter: 2025Q4

REPORT INFORMATION
  Report Type: Spontaneous
  Country: JP (occurrence: JP)
  Receive Date: 20251126
  Receipt Date: 20251230
  Transmission Date: 20260118
  Serious: Yes (Hospitalization, Other)
  Sender: BRISTOL-MYERS SQUIBB COMPANY
  Company Number: JP-ONO-2025JP021115

PATIENT
  Age: 48 Year
  Sex: Male

DRUGS (1)
  1. OPDIVO [Suspect]
     Active Substance: NIVOLUMAB
     Indication: Hodgkin^s disease refractory
     Dosage: 240 MG, BIWEEKLY X 6
     Route: 041

REACTIONS (2)
  - Acute graft versus host disease in intestine [Recovered/Resolved]
  - Acute graft versus host disease in skin [Recovered/Resolved]
